FAERS Safety Report 9111279 (Version 1)
Quarter: 2013Q1

REPORT INFORMATION
  Report Type: Spontaneous
  Country: US (occurrence: US)
  Receive Date: 20130219
  Receipt Date: 20130219
  Transmission Date: 20140127
  Serious: No
  Sender: FDA-Public Use
  Company Number: US-BRISTOL-MYERS SQUIBB COMPANY-16380636

PATIENT
  Age: 53 Year
  Sex: Female
  Weight: 84 kg

DRUGS (2)
  1. ORENCIA [Suspect]
     Indication: RHEUMATOID ARTHRITIS
     Route: 058
     Dates: start: 20111116
  2. METHOTREXATE [Concomitant]
     Dosage: INJECTION

REACTIONS (2)
  - Fluid retention [Unknown]
  - Joint swelling [Unknown]
